FAERS Safety Report 9746319 (Version 1)
Quarter: 2013Q4

REPORT INFORMATION
  Report Type: Spontaneous
  Country: CA (occurrence: CA)
  Receive Date: 20131211
  Receipt Date: 20131211
  Transmission Date: 20140711
  Serious: Yes (Hospitalization, Other)
  Sender: FDA-Public Use
  Company Number: CA-VERTEX PHARMACEUTICALS INC-2013-011694

PATIENT
  Age: 53 Year
  Sex: Male

DRUGS (12)
  1. INCIVEK [Suspect]
     Indication: HEPATITIS C
     Dosage: UNK
  2. PEGASYS [Suspect]
     Indication: HEPATITIS C
     Dosage: 180 ?G, UNK
  3. PEGASYS [Suspect]
     Dosage: 90 ?G, UNK
  4. PEGASYS [Suspect]
     Dosage: 135 ?G, UNK
  5. PEGASYS [Suspect]
     Dosage: 90 ?G, UNK
  6. RIBAVIRIN [Suspect]
     Indication: HEPATITIS C
     Dosage: 1200 MG, UNK
  7. RIBAVIRIN [Suspect]
     Dosage: 800 UNK, UNK
  8. CELEXA [Concomitant]
     Indication: DEPRESSION
  9. HYDROCHLOROTHIAZIDE [Concomitant]
  10. GABAPENTIN [Concomitant]
  11. NAPROXEN [Concomitant]
  12. 5 ASA [Concomitant]

REACTIONS (6)
  - Colitis ischaemic [Unknown]
  - Dehydration [Unknown]
  - Diarrhoea [Unknown]
  - Blood creatinine increased [Unknown]
  - Depression [Unknown]
  - Rash [Unknown]
